FAERS Safety Report 11260094 (Version 1)
Quarter: 2015Q3

REPORT INFORMATION
  Report Type: Spontaneous
  Country: US (occurrence: US)
  Receive Date: 20150710
  Receipt Date: 20150710
  Transmission Date: 20151125
  Serious: No
  Sender: FDA-Public Use
  Company Number: US-PURDUE-USA-2014-0118442

PATIENT
  Age: 50 Year
  Sex: Female

DRUGS (4)
  1. BUTRANS [Suspect]
     Active Substance: BUPRENORPHINE
     Dosage: 15 MCG/HR, WEEKLY
     Route: 062
     Dates: start: 201408, end: 201410
  2. BUTRANS [Suspect]
     Active Substance: BUPRENORPHINE
     Dosage: 10 MCG/HR, WEEKLY
     Route: 062
  3. BUTRANS [Suspect]
     Active Substance: BUPRENORPHINE
     Indication: PAIN
     Dosage: 15 MCG/HR, WEEKLY
     Route: 062
     Dates: start: 20141013
  4. BUTRANS [Suspect]
     Active Substance: BUPRENORPHINE
     Dosage: 20 MCG/HR, WEEKLY
     Route: 062

REACTIONS (8)
  - Product adhesion issue [Unknown]
  - Application site erosion [Unknown]
  - Application site pruritus [Unknown]
  - Inadequate analgesia [Unknown]
  - Application site erythema [Unknown]
  - Drug effect increased [Recovered/Resolved]
  - Feeling abnormal [Recovered/Resolved]
  - Application site scab [Unknown]

NARRATIVE: CASE EVENT DATE: 201403
